FAERS Safety Report 8990287 (Version 3)
Quarter: 2019Q2

REPORT INFORMATION
  Report Type: Spontaneous
  Country: US (occurrence: US)
  Receive Date: 20121228
  Receipt Date: 20190618
  Transmission Date: 20190711
  Serious: Yes (Other)
  Sender: FDA-Public Use
  Company Number: US-PFIZER INC-2012328520

PATIENT
  Age: 53 Year
  Sex: Female

DRUGS (9)
  1. SUMATRIPTAN SUCCINATE. [Suspect]
     Active Substance: SUMATRIPTAN SUCCINATE
     Indication: HEADACHE
     Dosage: UNK (6-MG SUBCUTANEOUS INJECTION)
     Route: 058
  2. SUMATRIPTAN SUCCINATE. [Suspect]
     Active Substance: SUMATRIPTAN SUCCINATE
     Dosage: 50 MG, UNK
     Route: 048
     Dates: start: 20071115
  3. SUMATRIPTAN SUCCINATE. [Suspect]
     Active Substance: SUMATRIPTAN SUCCINATE
     Dosage: UNK(50-100 MG)
  4. MAGNESIUM [Concomitant]
     Active Substance: MAGNESIUM
     Dosage: 250 MG, 1X/DAY
     Route: 048
  5. ALMOTRIPTAN. [Suspect]
     Active Substance: ALMOTRIPTAN
     Indication: MIGRAINE
     Dosage: UNK (12.5 MG TABS: HALF TO ONE TAB)
  6. RIBOFLAVIN [Concomitant]
     Active Substance: RIBOFLAVIN
     Dosage: 100 MG, 1X/DAY
  7. SUMATRIPTAN SUCCINATE. [Suspect]
     Active Substance: SUMATRIPTAN SUCCINATE
     Dosage: UNK (100-MG TABLET)
     Route: 048
  8. RIBOFLAVIN [Concomitant]
     Active Substance: RIBOFLAVIN
     Dosage: 400 MG, 1X/DAY
  9. NAPROXEN SODIUM. [Concomitant]
     Active Substance: NAPROXEN SODIUM
     Dosage: AS-NEEDED, UNK

REACTIONS (9)
  - Arteriosclerosis [Recovered/Resolved]
  - Myocardial ischaemia [Unknown]
  - Chest pain [Unknown]
  - Electrocardiogram QT prolonged [Recovered/Resolved]
  - Prinzmetal angina [Unknown]
  - Electrocardiogram change [Unknown]
  - Torsade de pointes [Unknown]
  - Ventricular arrhythmia [Recovered/Resolved]
  - Arteriospasm coronary [Unknown]
